FAERS Safety Report 6429832-5 (Version None)
Quarter: 2009Q4

REPORT INFORMATION
  Report Type: 
  Country: None (occurrence: None)
  Receive Date: 20091106
  Receipt Date: 20091102
  Transmission Date: 20100525
  Serious: Yes (Death)
  Sender: FDA-Public Use
  Company Number: US-JNJFOC-20091101054

PATIENT
  Sex: Male
  Weight: 59.42 kg

DRUGS (6)
  1. FENTANYL-100 [Suspect]
     Indication: PAIN
     Route: 062
  2. ACETAMINOPHEN [Concomitant]
     Route: 065
  3. HYDROCODONE [Concomitant]
     Route: 065
  4. EPHEDRINE [Concomitant]
     Route: 065
  5. CARISOPRODOL [Concomitant]
     Route: 065
  6. MEPROBAMATE [Concomitant]

REACTIONS (1)
  - ORGANISING PNEUMONIA [None]
